FAERS Safety Report 15266337 (Version 1)
Quarter: 2018Q3

REPORT INFORMATION
  Report Type: Report from Study
  Country: FR (occurrence: FR)
  Receive Date: 20180810
  Receipt Date: 20180810
  Transmission Date: 20181010
  Serious: Yes (Other)
  Sender: FDA-Public Use
  Company Number: FR-TEVA-2018-FR-938754

PATIENT
  Sex: Male

DRUGS (13)
  1. METHOTREXATE. [Suspect]
     Active Substance: METHOTREXATE
     Route: 037
     Dates: start: 20161112, end: 20170107
  2. AMOXICILLIN. [Concomitant]
     Active Substance: AMOXICILLIN
     Indication: APLASIA
  3. DEXAMETHASONE. [Suspect]
     Active Substance: DEXAMETHASONE
     Indication: ACUTE LYMPHOCYTIC LEUKAEMIA
     Route: 048
     Dates: start: 20161111, end: 20170110
  4. 6?MERCAPTOPURINE MONOHYDRATE [Suspect]
     Active Substance: MERCAPTOPURINE
     Indication: ACUTE LYMPHOCYTIC LEUKAEMIA
     Dosage: 40 MILLIGRAM DAILY;
     Route: 048
     Dates: start: 20161111, end: 20170127
  5. CIPROFLOXACIN. [Concomitant]
     Active Substance: CIPROFLOXACIN
     Indication: APLASIA
  6. TAZOCILLINE [Concomitant]
     Active Substance: PIPERACILLIN SODIUM\TAZOBACTAM SODIUM
     Indication: FEBRILE BONE MARROW APLASIA
  7. AMOXICILLIN. [Concomitant]
     Active Substance: AMOXICILLIN
     Indication: LUNG DISORDER
  8. ERWINASE                           /00143501/ [Suspect]
     Active Substance: ASPARAGINASE
     Indication: ACUTE LYMPHOCYTIC LEUKAEMIA
     Route: 042
     Dates: start: 20161216, end: 20170125
  9. TAZOCILLINE [Concomitant]
     Active Substance: PIPERACILLIN SODIUM\TAZOBACTAM SODIUM
     Indication: LUNG DISORDER
  10. PEGASPARGASE [Suspect]
     Active Substance: PEGASPARGASE
     Indication: ACUTE LYMPHOCYTIC LEUKAEMIA
     Route: 042
     Dates: start: 20161118, end: 20161118
  11. VINCRISTINE [Suspect]
     Active Substance: VINCRISTINE
     Indication: ACUTE LYMPHOCYTIC LEUKAEMIA
     Dosage: 1.1 MILLIGRAM DAILY;
     Route: 042
     Dates: start: 20161111, end: 20170113
  12. METHOTREXATE. [Suspect]
     Active Substance: METHOTREXATE
     Indication: ACUTE LYMPHOCYTIC LEUKAEMIA
     Dosage: 20 MILLIGRAM DAILY;
     Route: 048
     Dates: start: 20161111, end: 20170127
  13. AMIKLIN                            /00391001/ [Concomitant]
     Active Substance: AMIKACIN SULFATE
     Indication: FEBRILE BONE MARROW APLASIA

REACTIONS (1)
  - Alanine aminotransferase increased [Recovered/Resolved]

NARRATIVE: CASE EVENT DATE: 20161118
